FAERS Safety Report 13488713 (Version 1)
Quarter: 2017Q2

REPORT INFORMATION
  Report Type: Spontaneous
  Country: US (occurrence: US)
  Receive Date: 20170427
  Receipt Date: 20170427
  Transmission Date: 20170830
  Serious: Yes (Other)
  Sender: FDA-Public Use
  Company Number: US-APOTEX-2017AP010832

PATIENT
  Age: 26 Year
  Sex: Female

DRUGS (7)
  1. LAMOTRIGINE. [Suspect]
     Active Substance: LAMOTRIGINE
     Dosage: 700 MG PER DAY (DOSE BEFORE CLINICAL TOXICITY AT 26 AGE)
     Route: 065
  2. LAMOTRIGINE. [Suspect]
     Active Substance: LAMOTRIGINE
     Dosage: 300 MG PER DAY (DOSE BEFORE AND DURING CLINICAL TOXICITY AT 31 AGE)
     Route: 065
  3. LAMOTRIGINE. [Suspect]
     Active Substance: LAMOTRIGINE
     Dosage: 650 MG PER DAY (DOSE WITH CLINICAL TOXICITY AT THE AGE OF 26 YEARS)
     Route: 065
  4. LAMOTRIGINE. [Suspect]
     Active Substance: LAMOTRIGINE
     Dosage: 500 MG PER DAY (DOSE WITH CLINICAL TOXICITY AT 29 AGE)
     Route: 065
  5. VALPROATE [Concomitant]
     Active Substance: VALPROIC ACID
     Indication: EPILEPSY
     Route: 065
  6. LAMOTRIGINE. [Suspect]
     Active Substance: LAMOTRIGINE
     Indication: EPILEPSY
     Dosage: 800 MG, PER DAY (DOSE BEFORE CLINICAL TOXICITY)
     Route: 065
  7. LAMOTRIGINE. [Suspect]
     Active Substance: LAMOTRIGINE
     Dosage: 525 MG PERD DAY (BEFORE CLINICAL TOXICITY AT 29 AGE)
     Route: 065

REACTIONS (9)
  - Vomiting [Unknown]
  - Ataxia [Unknown]
  - Toxicity to various agents [Unknown]
  - Nausea [Unknown]
  - Dizziness [Unknown]
  - Nystagmus [Unknown]
  - Tremor [Unknown]
  - Headache [Unknown]
  - Vision blurred [Unknown]
